FAERS Safety Report 9893979 (Version 2)
Quarter: 2014Q3

REPORT INFORMATION
  Report Type: Spontaneous
  Country: US (occurrence: US)
  Receive Date: 20140213
  Receipt Date: 20140812
  Transmission Date: 20150326
  Serious: Yes (Hospitalization, Other)
  Sender: FDA-Public Use
  Company Number: US-009507513-1402USA005766

PATIENT
  Sex: Female

DRUGS (1)
  1. NUVARING [Suspect]
     Active Substance: ETHINYL ESTRADIOL\ETONOGESTREL
     Indication: CONTRACEPTION
     Dosage: 0.120 MG-0.015 MG VAGINAL RING EVERY MONTH
     Route: 067
     Dates: start: 201107

REACTIONS (13)
  - Oxygen saturation decreased [Unknown]
  - Dilatation ventricular [Unknown]
  - Anxiety [Unknown]
  - Right atrial dilatation [Unknown]
  - Depression [Unknown]
  - Wisdom teeth removal [Unknown]
  - Asthma exercise induced [Unknown]
  - Pulmonary embolism [Unknown]
  - Asthma [Unknown]
  - Vomiting [Unknown]
  - Hypokalaemia [Unknown]
  - Tricuspid valve incompetence [Unknown]
  - Echocardiogram abnormal [Unknown]

NARRATIVE: CASE EVENT DATE: 20110930
